FAERS Safety Report 24206770 (Version 2)
Quarter: 2024Q3

REPORT INFORMATION
  Report Type: Spontaneous
  Country: JP (occurrence: JP)
  Receive Date: 20240813
  Receipt Date: 20240815
  Transmission Date: 20241016
  Serious: Yes (Death, Other)
  Sender: JAZZ
  Company Number: JP-JAZZ PHARMACEUTICALS-2024-JP-011505

PATIENT
  Age: 75 Year
  Sex: Male

DRUGS (1)
  1. VYXEOS [Suspect]
     Active Substance: CYTARABINE\DAUNORUBICIN
     Indication: Acute myeloid leukaemia
     Dosage: UNK
     Route: 042
     Dates: start: 20240711, end: 20240716

REACTIONS (6)
  - Myelosuppression [Fatal]
  - Acute myeloid leukaemia [Fatal]
  - Infection [Fatal]
  - Cytopenia [Unknown]
  - Stomatitis [Unknown]
  - Decreased appetite [Unknown]
